FAERS Safety Report 6396250-8 (Version None)
Quarter: 2009Q4

REPORT INFORMATION
  Report Type: 
  Country: None (occurrence: None)
  Receive Date: 20091012
  Receipt Date: 20091002
  Transmission Date: 20100525
  Serious: Yes (Life-Threatening, Hospitalization)
  Sender: FDA-Public Use
  Company Number: FR-BIOGENIDEC-2009BI031736

PATIENT
  Age: 67 Year
  Sex: Male
  Weight: 67 kg

DRUGS (7)
  1. TYSABRI [Suspect]
     Indication: MULTIPLE SCLEROSIS
     Route: 042
     Dates: start: 20070620, end: 20090624
  2. MUSCLE RELAXANTS [Concomitant]
  3. METFORMIN HYDROCHLORIDE [Concomitant]
  4. KARDEGIC [Concomitant]
  5. ZOXAN [Concomitant]
  6. ANALGESIC [Concomitant]
  7. ANTIHYPERTENSIVES [Concomitant]

REACTIONS (2)
  - CEREBRAL ISCHAEMIA [None]
  - GASTROSTOMY [None]
